FAERS Safety Report 5934197-9 (Version None)
Quarter: 2008Q4

REPORT INFORMATION
  Report Type: 
  Country: None (occurrence: None)
  Receive Date: 20081028
  Receipt Date: 20081028
  Transmission Date: 20090506
  Serious: No
  Sender: FDA-Public Use
  Company Number: None

PATIENT
  Sex: Female
  Weight: 14.5151 kg

DRUGS (3)
  1. SINGULAIR [Suspect]
     Indication: MULTIPLE ALLERGIES
     Dosage: 4 MG DAILY BUCCAL
     Route: 002
     Dates: start: 20081017, end: 20081023
  2. SINGULAIR [Suspect]
     Indication: SNORING
     Dosage: 4 MG DAILY BUCCAL
     Route: 002
     Dates: start: 20081017, end: 20081023
  3. SINGULAIR [Suspect]

REACTIONS (3)
  - ABNORMAL BEHAVIOUR [None]
  - AGGRESSION [None]
  - INSOMNIA [None]
